FAERS Safety Report 18904945 (Version 1)
Quarter: 2021Q1

REPORT INFORMATION
  Report Type: Spontaneous
  Country: US (occurrence: US)
  Receive Date: 20210217
  Receipt Date: 20210217
  Transmission Date: 20210420
  Serious: Yes (Life-Threatening)
  Sender: FDA-Public Use
  Company Number: None

PATIENT
  Age: 45 Year
  Sex: Female
  Weight: 93.15 kg

DRUGS (1)
  1. CLONAZEPAM. [Suspect]
     Active Substance: CLONAZEPAM
     Indication: ANXIETY
     Dosage: ?          QUANTITY:2 TABLET(S);?
     Route: 048
     Dates: start: 20210129, end: 20210203

REACTIONS (9)
  - Akathisia [None]
  - Suicidal ideation [None]
  - Product substitution issue [None]
  - Depression [None]
  - Withdrawal syndrome [None]
  - Insomnia [None]
  - Myoclonus [None]
  - Tremor [None]
  - Suspected product quality issue [None]

NARRATIVE: CASE EVENT DATE: 20210131
